FAERS Safety Report 9736709 (Version 1)
Quarter: 2013Q4

REPORT INFORMATION
  Report Type: Spontaneous
  Country: US (occurrence: US)
  Receive Date: 20131206
  Receipt Date: 20131206
  Transmission Date: 20140711
  Serious: No
  Sender: FDA-Public Use
  Company Number: US-GILEAD-2009-0023643

PATIENT
  Sex: Female
  Weight: 88.45 kg

DRUGS (11)
  1. LETAIRIS [Suspect]
     Indication: PULMONARY ARTERIAL HYPERTENSION
     Route: 048
     Dates: start: 20090720
  2. LASIX [Concomitant]
  3. IPRATROPIUM BR [Concomitant]
  4. DIGOXIN [Concomitant]
  5. ALBUTEROL [Concomitant]
  6. LOPRESSOR [Concomitant]
  7. COUMADIN [Concomitant]
  8. MAXAIR [Concomitant]
  9. ENALAPRIL [Concomitant]
  10. ADVAIR [Concomitant]
  11. ASPIRIN [Concomitant]

REACTIONS (2)
  - Abdominal discomfort [Unknown]
  - Oedema peripheral [Unknown]
